FAERS Safety Report 7282092-8 (Version None)
Quarter: 2011Q1

REPORT INFORMATION
  Report Type: 
  Country: None (occurrence: None)
  Receive Date: 20110208
  Receipt Date: 20110202
  Transmission Date: 20110831
  Serious: Yes (Other)
  Sender: FDA-Public Use
  Company Number: US-GENENTECH-313250

PATIENT
  Sex: Female
  Weight: 90.9 kg

DRUGS (3)
  1. LUCENTIS [Suspect]
     Indication: MACULAR DEGENERATION
  2. UNSPECIFIED MEDICATIONS [Concomitant]
     Indication: PRODUCT USED FOR UNKNOWN INDICATION
  3. AVASTIN [Suspect]
     Indication: MACULAR DEGENERATION

REACTIONS (3)
  - CYSTOCELE [None]
  - LUNG NEOPLASM MALIGNANT [None]
  - RECTOCELE [None]
